FAERS Safety Report 6555079-8 (Version None)
Quarter: 2010Q1

REPORT INFORMATION
  Report Type: 
  Country: None (occurrence: None)
  Receive Date: 20100126
  Receipt Date: 20100126
  Transmission Date: 20100710
  Serious: Yes (Other)
  Sender: FDA-Public Use
  Company Number: None

PATIENT
  Sex: Female
  Weight: 68.0396 kg

DRUGS (2)
  1. PRILOSEC [Suspect]
     Indication: GASTROOESOPHAGEAL REFLUX DISEASE
     Dosage: 1 A DAY
     Dates: start: 20090201, end: 20091001
  2. PRILOSEC [Suspect]
     Indication: HERNIA
     Dosage: 1 A DAY
     Dates: start: 20090201, end: 20091001

REACTIONS (3)
  - HYPERSENSITIVITY [None]
  - IMPAIRED HEALING [None]
  - ULCER [None]
